FAERS Safety Report 20405680 (Version 1)
Quarter: 2022Q1

REPORT INFORMATION
  Report Type: Spontaneous
  Country: US (occurrence: None)
  Receive Date: 20220130
  Receipt Date: 20220130
  Transmission Date: 20220423
  Serious: No
  Sender: FDA-Public Use
  Company Number: None

PATIENT
  Age: 66 Year
  Sex: Female
  Weight: 78.3 kg

DRUGS (1)
  1. SUTAB [Suspect]
     Active Substance: MAGNESIUM SULFATE\POTASSIUM CHLORIDE\SODIUM SULFATE
     Indication: Colonoscopy
     Dosage: OTHER QUANTITY : 12 TABLET(S);?OTHER FREQUENCY : 5 HOURS APART;?
     Route: 048
     Dates: start: 20220126, end: 20220126

REACTIONS (4)
  - Drug ineffective [None]
  - Chills [None]
  - Chills [None]
  - Tremor [None]

NARRATIVE: CASE EVENT DATE: 20220126
